FAERS Safety Report 7765943-X (Version None)
Quarter: 2011Q3

REPORT INFORMATION
  Report Type: 
  Country: None (occurrence: None)
  Receive Date: 20110921
  Receipt Date: 20110906
  Transmission Date: 20111222
  Serious: Yes (Hospitalization)
  Sender: FDA-Public Use
  Company Number: SE-WATSON-2011-14798

PATIENT
  Age: 50 Year
  Sex: Male

DRUGS (2)
  1. METRONIDAZOLE [Suspect]
     Indication: APPENDICEAL ABSCESS
     Dosage: 400 MG, TID
     Route: 048
  2. METRONIDAZOLE [Suspect]
     Indication: APPENDICEAL ABSCESS
     Dosage: 1 G, DAILY X 2 DAYS
     Route: 042

REACTIONS (8)
  - ENCEPHALOPATHY [None]
  - DIZZINESS [None]
  - ATAXIA [None]
  - DEAFNESS [None]
  - DYSARTHRIA [None]
  - FATIGUE [None]
  - VOMITING [None]
  - BALANCE DISORDER [None]
